FAERS Safety Report 6461084-2 (Version None)
Quarter: 2009Q4

REPORT INFORMATION
  Report Type: 
  Country: None (occurrence: None)
  Receive Date: 20091120
  Receipt Date: 20091116
  Transmission Date: 20100525
  Serious: Yes (Death)
  Sender: FDA-Public Use
  Company Number: 09DE001211

PATIENT
  Age: 9 Month

DRUGS (1)
  1. VALPROIC ACID [Suspect]
     Indication: SPINAL MUSCULAR ATROPHY
     Dosage: 20 MG/KG, LIQUID, ORAL
     Route: 048

REACTIONS (1)
  - SPINAL MUSCULAR ATROPHY [None]
